FAERS Safety Report 15238893 (Version 2)
Quarter: 2018Q3

REPORT INFORMATION
  Report Type: Spontaneous
  Country: US (occurrence: US)
  Receive Date: 20180803
  Receipt Date: 20180920
  Transmission Date: 20181010
  Serious: Yes (Other)
  Sender: FDA-Public Use
  Company Number: US-PFIZER INC-2018313254

PATIENT
  Age: 86 Year
  Sex: Male
  Weight: 67 kg

DRUGS (2)
  1. LYRICA [Suspect]
     Active Substance: PREGABALIN
     Indication: NEURALGIA
     Dosage: 50 MG, 2X/DAY
     Route: 048
     Dates: start: 201805, end: 201806
  2. CRESTOR [Concomitant]
     Active Substance: ROSUVASTATIN CALCIUM
     Indication: LIPIDS ABNORMAL
     Dosage: 10 MG, 1X/DAY
     Route: 048

REACTIONS (9)
  - Feeling abnormal [Recovered/Resolved]
  - Dizziness [Unknown]
  - Mental impairment [Recovered/Resolved]
  - Somnolence [Unknown]
  - Impaired driving ability [Recovered/Resolved]
  - Depressed level of consciousness [Recovered/Resolved]
  - Fatigue [Recovered/Resolved]
  - Memory impairment [Recovered/Resolved]
  - Mental disorder [Recovered/Resolved]
